FAERS Safety Report 8015813-7 (Version None)
Quarter: 2011Q4

REPORT INFORMATION
  Report Type: 
  Country: None (occurrence: None)
  Receive Date: 20111230
  Receipt Date: 20111029
  Transmission Date: 20120403
  Serious: Yes (Other)
  Sender: FDA-Public Use
  Company Number: PHHY2011JP96312

PATIENT
  Age: 20 Year
  Sex: Male

DRUGS (1)
  1. DICLOFENAC SODIUM [Suspect]

REACTIONS (4)
  - BLOOD IMMUNOGLOBULIN G INCREASED [None]
  - AUTOIMMUNE HEPATITIS [None]
  - ANTINUCLEAR ANTIBODY INCREASED [None]
  - HEPATIC FUNCTION ABNORMAL [None]
